FAERS Safety Report 8979587 (Version 1)
Quarter: 2012Q4

REPORT INFORMATION
  Report Type: 
  Country: DE (occurrence: DE)
  Receive Date: 20121221
  Receipt Date: 20121221
  Transmission Date: 20130627
  Serious: Yes (Other)
  Sender: FDA-Public Use
  Company Number: DE-OTSUKA-004099

PATIENT
  Sex: Female

DRUGS (2)
  1. PLETAL [Suspect]
     Dosage: 100 mg, Mg milligram(s)
     Route: 048
     Dates: start: 20070305, end: 20071004
  2. NAFTI [Concomitant]
     Dosage: UNK Unknown, unknown
     Route: 065
     Dates: start: 20070122

REACTIONS (1)
  - Hypertensive crisis [Unknown]
